FAERS Safety Report 12073455 (Version 3)
Quarter: 2017Q1

REPORT INFORMATION
  Report Type: Report from Study
  Country: US (occurrence: US)
  Receive Date: 20160212
  Receipt Date: 20170206
  Transmission Date: 20170428
  Serious: Yes (Hospitalization, Other)
  Sender: FDA-Public Use
  Company Number: US-ACTELION-A-NJ2016-131181

PATIENT
  Age: 67 Year
  Sex: Male
  Weight: 52.15 kg

DRUGS (3)
  1. REMODULIN [Concomitant]
     Active Substance: TREPROSTINIL
  2. WARFARIN [Concomitant]
     Active Substance: WARFARIN
  3. OPSUMIT [Suspect]
     Active Substance: MACITENTAN
     Indication: PULMONARY ARTERIAL HYPERTENSION
     Dosage: 10 MG, QD
     Route: 048
     Dates: start: 20150630

REACTIONS (8)
  - Renal failure [Unknown]
  - Arteriovenous shunt operation [Unknown]
  - Dyspnoea [Unknown]
  - Pulmonary oedema [Unknown]
  - Dialysis [Unknown]
  - Secretion discharge [Unknown]
  - Urinary tract infection [Unknown]
  - Sinusitis [Unknown]
